FAERS Safety Report 18038921 (Version 1)
Quarter: 2020Q3

REPORT INFORMATION
  Report Type: Spontaneous
  Country: US (occurrence: US)
  Receive Date: 20200717
  Receipt Date: 20200717
  Transmission Date: 20201103
  Serious: No
  Sender: FDA-Public Use
  Company Number: US-BAUSCH-BL-2020-018905

PATIENT
  Age: 73 Year
  Sex: Female
  Weight: 50.85 kg

DRUGS (3)
  1. EQUATE EYE ITCH RELIEF [Suspect]
     Active Substance: KETOTIFEN FUMARATE
     Indication: SEASONAL ALLERGY
     Route: 047
     Dates: start: 202006, end: 202006
  2. EQUATE EYE ITCH RELIEF [Suspect]
     Active Substance: KETOTIFEN FUMARATE
     Indication: EYE ALLERGY
     Dosage: ABOUT 6 TO 7 WEEKS AGO
     Route: 047
     Dates: start: 202005, end: 202005
  3. ADVANCED EYE RELIEF/EYE WASH [Concomitant]
     Active Substance: WATER
     Indication: PRODUCT USED FOR UNKNOWN INDICATION
     Dosage: AS NEEDED
     Route: 047

REACTIONS (1)
  - Drug ineffective [Unknown]

NARRATIVE: CASE EVENT DATE: 202005
